FAERS Safety Report 13978954 (Version 1)
Quarter: 2017Q3

REPORT INFORMATION
  Report Type: Spontaneous
  Country: US (occurrence: US)
  Receive Date: 20170914
  Receipt Date: 20170914
  Transmission Date: 20171128
  Serious: No
  Sender: FDA-Public Use
  Company Number: US-ASTELLAS-2017US006139

PATIENT
  Age: 62 Year
  Sex: Male

DRUGS (1)
  1. XTANDI [Suspect]
     Active Substance: ENZALUTAMIDE
     Indication: HORMONE-REFRACTORY PROSTATE CANCER
     Route: 048

REACTIONS (9)
  - Pain in jaw [Unknown]
  - Pain in extremity [Unknown]
  - Hypoaesthesia [Unknown]
  - Bone loss [Unknown]
  - Arthralgia [Unknown]
  - Myalgia [Unknown]
  - Toothache [Unknown]
  - Musculoskeletal chest pain [Unknown]
  - Malaise [Unknown]

NARRATIVE: CASE EVENT DATE: 2017
